FAERS Safety Report 26037900 (Version 1)
Quarter: 2025Q4

REPORT INFORMATION
  Report Type: Spontaneous
  Country: US (occurrence: US)
  Receive Date: 20251112
  Receipt Date: 20251112
  Transmission Date: 20260118
  Serious: Yes (Other)
  Sender: BRACCO
  Company Number: US-BRACCO-2025US06632

PATIENT
  Age: 43 Year
  Sex: Male

DRUGS (11)
  1. LUMASON [Suspect]
     Active Substance: SULFUR HEXAFLUORIDE
     Dosage: 2 ML, SINGLE
     Route: 042
     Dates: start: 20250915, end: 20250915
  2. LUMASON [Suspect]
     Active Substance: SULFUR HEXAFLUORIDE
     Dosage: 2 ML, SINGLE
     Route: 042
     Dates: start: 20250915, end: 20250915
  3. LUMASON [Suspect]
     Active Substance: SULFUR HEXAFLUORIDE
     Dosage: 2 ML, SINGLE
     Route: 042
     Dates: start: 20250915, end: 20250915
  4. ASPIRIN [Concomitant]
     Active Substance: ASPIRIN
  5. ATORVASTATIN [Concomitant]
     Active Substance: ATORVASTATIN
  6. CLOPIDOGREL [Concomitant]
     Active Substance: CLOPIDOGREL BISULFATE
  7. FUROSEMIDE [Concomitant]
     Active Substance: FUROSEMIDE
  8. LISINOPRIL [Concomitant]
     Active Substance: LISINOPRIL
  9. METOPROLOL [Concomitant]
     Active Substance: METOPROLOL
  10. NITROGLYCERIN [Concomitant]
     Active Substance: NITROGLYCERIN
  11. SERTRALINE [Concomitant]
     Active Substance: SERTRALINE HYDROCHLORIDE

REACTIONS (5)
  - Loss of consciousness [Recovered/Resolved]
  - Seizure [Recovered/Resolved]
  - Chest pain [Recovered/Resolved]
  - Feeling hot [Recovered/Resolved]
  - Flushing [Recovered/Resolved]

NARRATIVE: CASE EVENT DATE: 20250915
